FAERS Safety Report 13940038 (Version 1)
Quarter: 2017Q3

REPORT INFORMATION
  Report Type: Spontaneous
  Country: US (occurrence: US)
  Receive Date: 20170906
  Receipt Date: 20170906
  Transmission Date: 20171127
  Serious: Yes (Life-Threatening, Hospitalization)
  Sender: FDA-Public Use
  Company Number: US-STRIDES ARCOLAB LIMITED-2017SP012336

PATIENT

DRUGS (5)
  1. ACEPROMAZINE [Suspect]
     Active Substance: ACEPROMAZINE
     Indication: PRODUCT USED FOR UNKNOWN INDICATION
     Dosage: UNK
     Route: 065
  2. DEXAMFETAMINE [Suspect]
     Active Substance: DEXTROAMPHETAMINE
     Indication: PRODUCT USED FOR UNKNOWN INDICATION
     Dosage: UNK
     Route: 065
  3. DICYCLOVERINE [Suspect]
     Active Substance: DICYCLOMINE HYDROCHLORIDE
     Indication: PRODUCT USED FOR UNKNOWN INDICATION
     Dosage: UNK
     Route: 065
  4. OXYCODONE [Suspect]
     Active Substance: OXYCODONE
     Indication: PRODUCT USED FOR UNKNOWN INDICATION
     Dosage: UNK
     Route: 065
  5. BUSPIRONE HYDROCHLORIDE. [Suspect]
     Active Substance: BUSPIRONE HYDROCHLORIDE
     Indication: PRODUCT USED FOR UNKNOWN INDICATION
     Dosage: UNK
     Route: 065

REACTIONS (14)
  - Neuroleptic malignant syndrome [Recovered/Resolved]
  - Hypothermia [Recovered/Resolved]
  - Renal failure [Recovered/Resolved]
  - Overdose [Recovered/Resolved]
  - Mydriasis [Recovered/Resolved]
  - Hyporeflexia [Recovered/Resolved]
  - Unresponsive to stimuli [Recovered/Resolved]
  - Leukopenia [Recovered/Resolved]
  - Septic shock [Recovered/Resolved]
  - Hypotension [Recovered/Resolved]
  - Rhabdomyolysis [Recovered/Resolved]
  - Depressed level of consciousness [Recovered/Resolved]
  - Muscle rigidity [Recovered/Resolved]
  - Metabolic acidosis [Recovered/Resolved]
